FAERS Safety Report 10586740 (Version 1)
Quarter: 2014Q4

REPORT INFORMATION
  Report Type: Spontaneous
  Country: US (occurrence: None)
  Receive Date: 20141114
  Receipt Date: 20141114
  Transmission Date: 20150529
  Serious: Yes (Disabling, Other)
  Sender: FDA-Public Use
  Company Number: None

PATIENT
  Age: 41 Year
  Sex: Female
  Weight: 56.7 kg

DRUGS (1)
  1. CIPRO [Suspect]
     Active Substance: CIPROFLOXACIN HYDROCHLORIDE
     Indication: URINARY TRACT INFECTION
     Dosage: TWICE DAILY, TAKEN BY MOUTH
     Route: 048
     Dates: start: 20141107, end: 20141110

REACTIONS (7)
  - Neuralgia [None]
  - Burning sensation [None]
  - Hypoaesthesia [None]
  - Heart rate increased [None]
  - Pruritus [None]
  - Anxiety [None]
  - Headache [None]

NARRATIVE: CASE EVENT DATE: 20141111
